FAERS Safety Report 4436143-6 (Version None)
Quarter: 2004Q3

REPORT INFORMATION
  Report Type: 
  Country: None (occurrence: None)
  Receive Date: 20040830
  Receipt Date: 20040816
  Transmission Date: 20050211
  Serious: Yes (Life-Threatening, Hospitalization, Disabling, Other)
  Sender: FDA-Public Use
  Company Number: US-JNJFOC-20040506033

PATIENT
  Sex: Female
  Weight: 91.63 kg

DRUGS (20)
  1. REMICADE [Suspect]
     Route: 042
  2. REMICADE [Suspect]
     Route: 042
  3. REMICADE [Suspect]
     Route: 042
  4. REMICADE [Suspect]
     Route: 042
  5. REMICADE [Suspect]
     Route: 042
  6. REMICADE [Suspect]
     Route: 042
  7. REMICADE [Suspect]
     Route: 042
  8. REMICADE [Suspect]
     Route: 042
  9. REMICADE [Suspect]
     Route: 042
  10. REMICADE [Suspect]
     Route: 042
  11. REMICADE [Suspect]
     Route: 042
  12. REMICADE [Suspect]
     Indication: RHEUMATOID ARTHRITIS
     Dosage: FIRST DOSE
     Route: 042
  13. METHOTREXATE [Suspect]
     Indication: RHEUMATOID ARTHRITIS
  14. NORVASC [Concomitant]
  15. PROZAC [Concomitant]
  16. FOLIC ACID [Concomitant]
  17. NAPROSYN [Concomitant]
  18. LIPITOR [Concomitant]
  19. SULINDAC [Concomitant]
  20. PREDNISONE [Concomitant]
     Dosage: 3 TABLETS DAY OF INFLIXIMAB TREATMENT.

REACTIONS (24)
  - ANION GAP INCREASED [None]
  - BLOOD CREATININE DECREASED [None]
  - C-REACTIVE PROTEIN INCREASED [None]
  - COLITIS ISCHAEMIC [None]
  - DELIRIUM [None]
  - DRUG INEFFECTIVE [None]
  - EXTRADURAL ABSCESS [None]
  - HYPONATRAEMIA [None]
  - HYPOXIA [None]
  - LOCALISED OSTEOARTHRITIS [None]
  - MUSCULOSKELETAL DISCOMFORT [None]
  - MUSCULOSKELETAL STIFFNESS [None]
  - NECK PAIN [None]
  - OEDEMA PERIPHERAL [None]
  - PAIN [None]
  - PARAPLEGIA [None]
  - PRURITUS [None]
  - RED BLOOD CELL SEDIMENTATION RATE INCREASED [None]
  - SLEEP DISORDER [None]
  - SOMNOLENCE [None]
  - SPINAL OSTEOARTHRITIS [None]
  - STAPHYLOCOCCAL BACTERAEMIA [None]
  - UROSEPSIS [None]
  - URTICARIA [None]
